FAERS Safety Report 6075578-5 (Version None)
Quarter: 2009Q1

REPORT INFORMATION
  Report Type: 
  Country: None (occurrence: None)
  Receive Date: 20090212
  Receipt Date: 20090204
  Transmission Date: 20090719
  Serious: Yes (Hospitalization, Other)
  Sender: FDA-Public Use
  Company Number: HR-ABBOTT-09P-216-0499609-00

PATIENT
  Age: 46 Year
  Sex: Female
  Weight: 62 kg

DRUGS (20)
  1. ZEMPLAR [Suspect]
     Indication: HYPERPARATHYROIDISM
     Route: 042
     Dates: start: 20080526
  2. ZEMPLAR [Suspect]
     Dates: start: 20071119
  3. ZEMPLAR [Suspect]
     Dates: start: 20071205
  4. ZEMPLAR [Suspect]
     Dates: start: 20080213
  5. ZEMPLAR [Suspect]
     Dates: start: 20081112
  6. EPOETIN BETA [Concomitant]
     Indication: ANAEMIA
     Route: 058
     Dates: start: 20071119, end: 20080414
  7. EPOETIN BETA [Concomitant]
     Route: 058
     Dates: start: 20080414, end: 20080505
  8. EPOETIN BETA [Concomitant]
     Route: 058
     Dates: start: 20080505, end: 20080725
  9. EPOETIN BETA [Concomitant]
     Dates: start: 20080912
  10. CALCIUM CARBONATE [Concomitant]
     Indication: HYPERPHOSPHATAEMIA
     Dates: start: 20070816, end: 20080314
  11. CALCIUM CARBONATE [Concomitant]
     Dates: start: 20080314, end: 20080716
  12. CALCIUM CARBONATE [Concomitant]
     Dates: start: 20080716, end: 20080912
  13. CALCIUM CARBONATE [Concomitant]
     Dates: start: 20080912
  14. AMLODIPINE [Concomitant]
     Indication: HYPERTENSION
     Dates: start: 20070605
  15. MOXONIDINE [Concomitant]
     Indication: HYPERTENSION
     Dates: start: 20080128
  16. PANTOPRAZOLE [Concomitant]
     Indication: GASTRITIS
     Dates: start: 20080128
  17. SEVELAMER [Concomitant]
     Indication: HYPERPHOSPHATAEMIA
     Dates: start: 20081009
  18. SEVELAMER [Concomitant]
     Dates: start: 20080611, end: 20080716
  19. SEVELAMER [Concomitant]
     Dates: start: 20080716, end: 20080820
  20. SEVELAMER [Concomitant]
     Dates: start: 20080820, end: 20081009

REACTIONS (2)
  - DYSPNOEA [None]
  - PERICARDIAL EFFUSION [None]
